FAERS Safety Report 26198355 (Version 1)
Quarter: 2025Q4

REPORT INFORMATION
  Report Type: Spontaneous
  Country: US (occurrence: US)
  Receive Date: 20251224
  Receipt Date: 20251224
  Transmission Date: 20260119
  Serious: Yes (Death, Life-Threatening, Hospitalization)
  Sender: AMGEN
  Company Number: US-AMGEN-USASP2025249556

PATIENT
  Age: 61 Year
  Sex: Female

DRUGS (8)
  1. PREDNISONE [Suspect]
     Active Substance: PREDNISONE
     Indication: Dyspnoea
     Dosage: 20 MILLIGRAM, BID (FOR 5 DAYS )
     Route: 065
  2. PREDNISONE [Suspect]
     Active Substance: PREDNISONE
     Indication: Fatigue
  3. PREDNISONE [Suspect]
     Active Substance: PREDNISONE
     Indication: Cough
  4. PREDNISONE [Suspect]
     Active Substance: PREDNISONE
     Indication: Lower respiratory tract congestion
  5. AUGMENTIN [Concomitant]
     Active Substance: AMOXICILLIN\CLAVULANATE POTASSIUM
     Indication: Dyspnoea
  6. AUGMENTIN [Concomitant]
     Active Substance: AMOXICILLIN\CLAVULANATE POTASSIUM
     Indication: Fatigue
  7. AUGMENTIN [Concomitant]
     Active Substance: AMOXICILLIN\CLAVULANATE POTASSIUM
     Indication: Cough
  8. AUGMENTIN [Concomitant]
     Active Substance: AMOXICILLIN\CLAVULANATE POTASSIUM
     Indication: Lower respiratory tract congestion

REACTIONS (7)
  - Pulseless electrical activity [Fatal]
  - Cardiac tamponade [Unknown]
  - Pleural effusion [Unknown]
  - Pericardial effusion malignant [Unknown]
  - Pulmonary mass [Unknown]
  - Drug ineffective for unapproved indication [Unknown]
  - Off label use [Unknown]
